FAERS Safety Report 7585349-6 (Version None)
Quarter: 2011Q3

REPORT INFORMATION
  Report Type: 
  Country: None (occurrence: None)
  Receive Date: 20110701
  Receipt Date: 20100108
  Transmission Date: 20111222
  Serious: Yes (Death, Other)
  Sender: FDA-Public Use
  Company Number: US-BAYER-201010374NA

PATIENT
  Age: 60 Year
  Sex: Male
  Weight: 96 kg

DRUGS (25)
  1. INSULIN [INSULIN] [Concomitant]
     Dosage: 20 UNITS EVERY MORNING
     Route: 058
     Dates: start: 20050830, end: 20050909
  2. GABAPENTIN [Concomitant]
     Dosage: 300 MG, TID
     Route: 048
     Dates: start: 20050818, end: 20050822
  3. DIOVAN [Concomitant]
     Dosage: 160 MG DAILY
     Route: 048
  4. LIPITOR [Concomitant]
     Dosage: 10 MG DAILY
  5. CLONIDINE [Concomitant]
     Dosage: 0.1 MG, QD
     Route: 048
  6. NITROGLYCERIN [Concomitant]
     Dosage: 50 MG IN 250 ML D5W AT 3 ML/HOUR
     Route: 042
     Dates: start: 20050829
  7. COZAAR [Concomitant]
     Dosage: 50MG DAILY
     Route: 048
  8. LASIX [Concomitant]
     Dosage: 80 MG, BID
     Route: 048
  9. ATROPINE [Concomitant]
     Dosage: UNK
     Dates: start: 20050818, end: 20050822
  10. VIGAMOX [Concomitant]
     Dosage: UNK
     Dates: start: 20050818, end: 20050822
  11. TOBRADEX [Concomitant]
     Indication: EYE OPERATION
     Dosage: UNK
     Dates: start: 20050818, end: 20050822
  12. CRESTOR [Concomitant]
     Dosage: 10 MG DAILY
     Route: 048
  13. ACETYLSALICYLIC ACID SRT [Concomitant]
     Dosage: 325 MG, QD
     Route: 048
  14. METOPROLOL TARTRATE [Concomitant]
     Dosage: UNK
     Dates: start: 20050823, end: 20050908
  15. HYDRALAZINE HCL [Concomitant]
     Dosage: 50 MG, TID
     Route: 048
     Dates: start: 20050823, end: 20050830
  16. CATAPRES [Concomitant]
     Dosage: TT3 PATCH EVERY WEEK
     Route: 058
     Dates: start: 20050825
  17. ELAVIL [Concomitant]
     Dosage: 25 MG, QD
     Route: 048
  18. HEPARIN [Concomitant]
     Dosage: 10 UNITS
     Route: 042
     Dates: start: 20050831, end: 20050831
  19. TRASYLOL [Suspect]
     Indication: ENDARTERECTOMY
  20. ECONOPRED [Concomitant]
     Dosage: UNK
     Dates: start: 20050824, end: 20050908
  21. VERSED [Concomitant]
     Dosage: 1 MG FOLLOWED BY 1 MG
     Route: 042
     Dates: start: 20050826
  22. TRASYLOL [Suspect]
     Indication: PRODUCT USED FOR UNKNOWN INDICATION
     Dosage: 200 ML, UNK
     Route: 042
     Dates: start: 20050831, end: 20050831
  23. NITROGLYCERIN [Concomitant]
     Dosage: AS NEEDED
     Route: 060
  24. CARDURA [Concomitant]
     Dosage: 1 MG DAILY
  25. PACKED RED BLOOD CELLS [Concomitant]
     Dosage: 2 U, ONCE
     Route: 042

REACTIONS (14)
  - CEREBROVASCULAR ACCIDENT [None]
  - ANXIETY [None]
  - PAIN [None]
  - INJURY [None]
  - RENAL INJURY [None]
  - STRESS [None]
  - RENAL FAILURE [None]
  - MULTI-ORGAN FAILURE [None]
  - EMOTIONAL DISTRESS [None]
  - UNEVALUABLE EVENT [None]
  - ANHEDONIA [None]
  - DEATH [None]
  - RENAL IMPAIRMENT [None]
  - FEAR [None]
